FAERS Safety Report 5641615-2 (Version None)
Quarter: 2008Q1

REPORT INFORMATION
  Report Type: 
  Country: None (occurrence: None)
  Receive Date: 20080227
  Receipt Date: 20071214
  Transmission Date: 20080703
  Serious: No
  Sender: FDA-Public Use
  Company Number: A0699013A

PATIENT
  Age: 70 Year
  Sex: Female

DRUGS (1)
  1. NICORETTE [Suspect]

REACTIONS (3)
  - GLOSSODYNIA [None]
  - ORAL MUCOSAL EXFOLIATION [None]
  - THERMAL BURN [None]
